FAERS Safety Report 4987246-9 (Version None)
Quarter: 2006Q2

REPORT INFORMATION
  Report Type: 
  Country: None (occurrence: None)
  Receive Date: 20060501
  Receipt Date: 20060301
  Transmission Date: 20061013
  Serious: Yes (Hospitalization, Disabling)
  Sender: FDA-Public Use
  Company Number: US-MERCK-0603USA00466

PATIENT
  Age: 52 Year
  Sex: Male
  Weight: 114 kg

DRUGS (2)
  1. VIOXX [Suspect]
     Indication: ARTHRALGIA
     Route: 048
     Dates: start: 19990925, end: 20001031
  2. TYLENOL (CAPLET) [Concomitant]
     Route: 065

REACTIONS (6)
  - ARTERIOSCLEROSIS CORONARY ARTERY [None]
  - CHEST PAIN [None]
  - CORONARY ARTERY STENOSIS [None]
  - LIMB INJURY [None]
  - MYOCARDIAL INFARCTION [None]
  - MYOCARDIAL ISCHAEMIA [None]
